FAERS Safety Report 7686432-7 (Version None)
Quarter: 2011Q3

REPORT INFORMATION
  Report Type: 
  Country: None (occurrence: None)
  Receive Date: 20110816
  Receipt Date: 20110811
  Transmission Date: 20111222
  Serious: Yes (Disabling)
  Sender: FDA-Public Use
  Company Number: DK-TEVA-296024ISR

PATIENT
  Sex: Female

DRUGS (2)
  1. EPIRUBICIN [Suspect]
     Indication: BREAST CANCER FEMALE
     Dates: start: 20091019
  2. CYCLOPHOSPHAMIDE [Suspect]
     Indication: BREAST CANCER FEMALE
     Dates: start: 20090928

REACTIONS (4)
  - PARALYSIS [None]
  - ARTHRALGIA [None]
  - MYALGIA [None]
  - PARAESTHESIA [None]
